FAERS Safety Report 9252017 (Version 1)
Quarter: 2013Q1

REPORT INFORMATION
  Report Type: Spontaneous
  Country: US (occurrence: None)
  Receive Date: 20130305
  Receipt Date: 20130305
  Transmission Date: 20140127
  Serious: Yes (Other)
  Sender: FDA-Public Use
  Company Number: 163-21880-12091182

PATIENT
  Age: 76 Year
  Sex: Male

DRUGS (5)
  1. REVLIMID (LENALIDOMIDE) (25 MILLIGRAM, CAPSULES) [Suspect]
     Indication: PLASMA CELL MYELOMA
     Dosage: 25 MG, 21 IN 21 D, PO
     Dates: start: 20120824
  2. ASPIR-81 (ACETYLSALICYLIC ACID) [Concomitant]
  3. METAMUCIL (PSYLLIUM) [Concomitant]
  4. MULTI-VITAMINS [Concomitant]
  5. ZOMETA (ZOLEDRONIC ACID) [Concomitant]

REACTIONS (3)
  - Fatigue [None]
  - Rash [None]
  - Rash [None]
